FAERS Safety Report 4338846-0 (Version None)
Quarter: 2004Q2

REPORT INFORMATION
  Report Type: 
  Country: None (occurrence: None)
  Receive Date: 20040414
  Receipt Date: 20040401
  Transmission Date: 20050107
  Serious: Yes (Death, Life-Threatening, Hospitalization)
  Sender: FDA-Public Use
  Company Number: US-MERCK-0404USA00119

PATIENT
  Age: 73 Year
  Sex: Male

DRUGS (1)
  1. INVANZ [Suspect]
     Indication: ABDOMINAL INFECTION
     Route: 042

REACTIONS (3)
  - CARDIAC ARREST [None]
  - DEATH [None]
  - STATUS EPILEPTICUS [None]
